FAERS Safety Report 8089416-2 (Version None)
Quarter: 2012Q1

REPORT INFORMATION
  Report Type: 
  Country: None (occurrence: None)
  Receive Date: 20120128
  Receipt Date: 20110629
  Transmission Date: 20120608
  Serious: No
  Sender: FDA-Public Use
  Company Number: US-ABBOTT-11P-163-0724553-00

PATIENT
  Sex: Male
  Weight: 90.8 kg

DRUGS (4)
  1. HUMIRA [Suspect]
     Indication: PSORIASIS
     Dates: start: 20100901, end: 20100901
  2. HUMIRA [Suspect]
     Dates: start: 20100901, end: 20110101
  3. HUMIRA [Suspect]
     Dates: start: 20110101, end: 20110101
  4. HUMIRA [Suspect]
     Dates: start: 20110101

REACTIONS (4)
  - SKIN LESION [None]
  - PSORIASIS [None]
  - ERYTHEMA [None]
  - IRRITABILITY [None]
